FAERS Safety Report 5978648-2 (Version None)
Quarter: 2008Q4

REPORT INFORMATION
  Report Type: 
  Country: None (occurrence: None)
  Receive Date: 20081204
  Receipt Date: 20081128
  Transmission Date: 20090506
  Serious: Yes (Hospitalization)
  Sender: FDA-Public Use
  Company Number: FR-AVENTIS-200814196FR

PATIENT
  Age: 14 Year
  Sex: Female

DRUGS (3)
  1. BIPROFENID [Suspect]
     Route: 048
     Dates: start: 20080520, end: 20080523
  2. FLAGYL [Suspect]
     Indication: WISDOM TEETH REMOVAL
     Route: 048
     Dates: start: 20080520, end: 20080524
  3. SPIRAMYCINE [Concomitant]
     Indication: WISDOM TEETH REMOVAL
     Route: 048
     Dates: start: 20080520, end: 20080524

REACTIONS (4)
  - ABDOMINAL PAIN [None]
  - NEPHRITIS ALLERGIC [None]
  - RENAL FAILURE ACUTE [None]
  - VOMITING [None]
